FAERS Safety Report 5942288-1 (Version None)
Quarter: 2008Q4

REPORT INFORMATION
  Report Type: 
  Country: None (occurrence: None)
  Receive Date: 20081105
  Receipt Date: 20081024
  Transmission Date: 20090506
  Serious: Yes (Hospitalization)
  Sender: FDA-Public Use
  Company Number: DE-ELI_LILLY_AND_COMPANY-DE200810006107

PATIENT
  Age: 42 Year
  Sex: Male

DRUGS (12)
  1. CYMBALTA [Suspect]
     Dosage: 30 MG, DAILY (1/D)
     Route: 065
     Dates: start: 20060719, end: 20060719
  2. CYMBALTA [Suspect]
     Dosage: 60 MG, DAILY (1/D)
     Route: 065
     Dates: start: 20060720, end: 20060722
  3. CYMBALTA [Suspect]
     Dosage: 90 MG, DAILY (1/D)
     Route: 065
     Dates: start: 20060723, end: 20060807
  4. CYMBALTA [Suspect]
     Dosage: 150 MG, DAILY (1/D)
     Dates: start: 20060808, end: 20060814
  5. CYMBALTA [Suspect]
     Dosage: 180 MG, DAILY (1/D)
     Route: 065
     Dates: start: 20060815, end: 20060817
  6. QUILONIUM-R [Concomitant]
     Dosage: 675 MG, UNKNOWN
     Route: 065
  7. ELMENDOS [Concomitant]
     Dosage: 200 MG, DAILY (1/D)
     Route: 065
     Dates: start: 20060805
  8. CIPRALEX [Concomitant]
     Dosage: 60 MG, UNKNOWN
     Route: 065
     Dates: start: 20060629
  9. SEROQUEL [Concomitant]
     Dosage: 700 MG, DAILY (1/D)
     Route: 065
     Dates: start: 20060705
  10. TILIDIN [Concomitant]
     Dosage: 400 MG, DAILY (1/D)
     Route: 065
  11. ZELDOX [Concomitant]
     Dosage: 240 MG, DAILY (1/D)
     Route: 065
     Dates: start: 20060615
  12. SORTIS [Concomitant]
     Dosage: 10 MG, DAILY (1/D)
     Route: 065

REACTIONS (1)
  - HEPATIC FUNCTION ABNORMAL [None]
